FAERS Safety Report 8837852 (Version 1)
Quarter: 2012Q4

REPORT INFORMATION
  Report Type: 
  Country: US (occurrence: US)
  Receive Date: 20121012
  Receipt Date: 20121012
  Transmission Date: 20130627
  Serious: Yes (Hospitalization)
  Sender: FDA-Public Use
  Company Number: US-ABBOTT-12P-163-0991270-00

PATIENT
  Sex: Female
  Weight: 118.04 kg

DRUGS (11)
  1. HUMIRA [Suspect]
     Indication: CROHN^S DISEASE
     Dates: end: 201205
  2. LANTUS [Concomitant]
     Indication: DIABETES MELLITUS
  3. METFORMIN (NON-ABBOTT) [Concomitant]
     Indication: DIABETES MELLITUS
  4. GLIPIZIDE [Concomitant]
     Indication: DIABETES MELLITUS
  5. AVAPRO [Concomitant]
     Indication: HYPERTENSION
  6. INDAPAMIDE [Concomitant]
     Indication: HYPERTENSION
  7. BABY ASPIRIN [Concomitant]
     Indication: CARDIOVASCULAR EVENT PROPHYLAXIS
  8. FUROSEMIDE [Concomitant]
     Indication: FLUID RETENTION
  9. LEVOTHYROXINE [Concomitant]
     Indication: HYPOTHYROIDISM
  10. CYCLOBENZAPRINE [Concomitant]
     Indication: MUSCLE SPASMS
  11. AMITRIPTYLINE [Concomitant]
     Indication: DIABETIC NEUROPATHY

REACTIONS (7)
  - Spinal osteoarthritis [Not Recovered/Not Resolved]
  - Back pain [Not Recovered/Not Resolved]
  - Pyrexia [Recovered/Resolved]
  - Staphylococcal infection [Recovered/Resolved]
  - Joint instability [Not Recovered/Not Resolved]
  - Muscular weakness [Not Recovered/Not Resolved]
  - Gait disturbance [Not Recovered/Not Resolved]
